FAERS Safety Report 15557569 (Version 1)
Quarter: 2018Q4

REPORT INFORMATION
  Report Type: Report from Study
  Country: None (occurrence: CA)
  Receive Date: 20181027
  Receipt Date: 20181027
  Transmission Date: 20190205
  Serious: Yes (Hospitalization, Other)
  Sender: FDA-Public Use
  Company Number: CA-ABBVIE-18K-028-2530196-00

PATIENT
  Sex: Female

DRUGS (2)
  1. HUMIRA [Suspect]
     Active Substance: ADALIMUMAB
     Indication: RHEUMATOID ARTHRITIS
     Route: 058
     Dates: start: 20100322, end: 201806
  2. HUMIRA [Suspect]
     Active Substance: ADALIMUMAB
     Route: 058
     Dates: start: 20181021

REACTIONS (10)
  - Muscle disorder [Unknown]
  - Arthralgia [Unknown]
  - Alopecia [Unknown]
  - Weight decreased [Unknown]
  - Septic shock [Unknown]
  - Acute pulmonary oedema [Unknown]
  - Gastric ulcer [Unknown]
  - Pneumonia [Unknown]
  - White blood cell count decreased [Unknown]
  - Genital herpes [Unknown]

NARRATIVE: CASE EVENT DATE: 2018
